FAERS Safety Report 12179817 (Version 1)
Quarter: 2016Q1

REPORT INFORMATION
  Report Type: Spontaneous
  Country: US (occurrence: None)
  Receive Date: 20160314
  Receipt Date: 20160314
  Transmission Date: 20160526
  Serious: Yes (Other)
  Sender: FDA-Public Use
  Company Number: None

PATIENT
  Age: 54 Year
  Sex: Female
  Weight: 47.17 kg

DRUGS (1)
  1. RESTASIS [Suspect]
     Active Substance: CYCLOSPORINE
     Dosage: INO THE EYE
     Route: 031

REACTIONS (5)
  - Eye infection [None]
  - Swelling face [None]
  - Dacryostenosis acquired [None]
  - Eye abscess [None]
  - Pain [None]

NARRATIVE: CASE EVENT DATE: 20140911
